FAERS Safety Report 5331655-5 (Version None)
Quarter: 2007Q2

REPORT INFORMATION
  Report Type: 
  Country: None (occurrence: None)
  Receive Date: 20070516
  Receipt Date: 20070507
  Transmission Date: 20071010
  Serious: Yes (Hospitalization)
  Sender: FDA-Public Use
  Company Number: 2007SP008891

PATIENT
  Age: 54 Year
  Sex: Male

DRUGS (2)
  1. PEG-INTRON [Suspect]
     Indication: HEPATITIS C
     Dosage: SC
     Route: 058
     Dates: start: 20060101, end: 20060101
  2. REBETOL [Suspect]
     Indication: HEPATITIS C
     Dosage: PO
     Route: 048
     Dates: start: 20060101, end: 20060101

REACTIONS (6)
  - ANXIETY [None]
  - ARTHRALGIA [None]
  - INSOMNIA [None]
  - NAUSEA [None]
  - NO THERAPEUTIC RESPONSE [None]
  - PANCREATITIS [None]
